FAERS Safety Report 5285212-X (Version None)
Quarter: 2007Q1

REPORT INFORMATION
  Report Type: 
  Country: None (occurrence: None)
  Receive Date: 20061229
  Receipt Date: 20061018
  Transmission Date: 20070707
  Serious: Yes (Other)
  Sender: FDA-Public Use
  Company Number: 2006UW16840

PATIENT
  Age: 65 Year
  Sex: Female

DRUGS (25)
  1. CRESTOR [Suspect]
     Dates: start: 20040101, end: 20040801
  2. PROTONIX [Suspect]
     Dosage: 40 MG QD
  3. MEDROXYPROGESTERONE [Concomitant]
  4. PREMARIN /CH/ [Concomitant]
  5. CARDURA /IE/ [Concomitant]
  6. PLENDIL [Concomitant]
  7. LEXAPRO [Concomitant]
  8. ATENOLOL [Concomitant]
  9. ZYRTEC [Concomitant]
  10. ACTOS [Concomitant]
  11. GLYBURIDE [Concomitant]
  12. GLUCOVANCE [Concomitant]
  13. PRAVACHOL [Concomitant]
  14. TRICOR [Concomitant]
  15. INSULIN [Concomitant]
  16. AVALIDE [Concomitant]
  17. ACETYLSALICYLIC ACID SRT [Concomitant]
  18. ASPIRIN 10GR TIMED DISINTEGRATION TAB [Concomitant]
  19. PLAVIX [Concomitant]
  20. AVAPRO [Concomitant]
  21. IMDUR [Concomitant]
  22. WELCHOL [Concomitant]
  23. MINOXIDIL [Concomitant]
  24. FUROSEMIDE [Concomitant]
  25. NITROGLYCERIN [Concomitant]

REACTIONS (6)
  - BLISTER [None]
  - ERYTHEMA [None]
  - ERYTHEMA MULTIFORME [None]
  - OEDEMA [None]
  - PHOTOSENSITIVITY ALLERGIC REACTION [None]
  - PRURITUS [None]
